FAERS Safety Report 5514382-0 (Version None)
Quarter: 2007Q4

REPORT INFORMATION
  Report Type: 
  Country: None (occurrence: None)
  Receive Date: 20071113
  Receipt Date: 20070524
  Transmission Date: 20080405
  Serious: No
  Sender: FDA-Public Use
  Company Number: A0649778A

PATIENT
  Age: 30 Year
  Sex: Female

DRUGS (2)
  1. COREG [Suspect]
     Indication: HYPERTENSION
     Dosage: 12.5MG PER DAY
     Route: 048
     Dates: start: 20060927, end: 20070423
  2. TRIPHASIL-21 [Concomitant]
     Dosage: 1TAB PER DAY
     Route: 048
     Dates: end: 20070423

REACTIONS (1)
  - OEDEMA PERIPHERAL [None]
